FAERS Safety Report 7923534-1 (Version None)
Quarter: 2011Q4

REPORT INFORMATION
  Report Type: 
  Country: None (occurrence: None)
  Receive Date: 20111117
  Receipt Date: 20110204
  Transmission Date: 20120403
  Serious: No
  Sender: FDA-Public Use
  Company Number: US-AMGEN-USASP2011007012

PATIENT
  Age: 63 Year
  Sex: Male

DRUGS (13)
  1. SIMVASTATIN [Concomitant]
     Dosage: 80 MG, UNK
  2. LEVOTHYROXINE SODIUM [Concomitant]
     Dosage: 125 UNK, UNK
  3. LISINOPRIL [Concomitant]
     Dosage: 20 MG, UNK
  4. FLOMAX [Concomitant]
     Dosage: 0.4 MG, UNK
  5. ASPIRIN [Concomitant]
     Dosage: 81 MG, UNK
  6. CO Q-10 [Concomitant]
     Dosage: 100 MG, UNK
  7. SINGULAIR [Concomitant]
     Dosage: 10 MG, UNK
  8. MULTIVITAMIN                       /00097801/ [Concomitant]
  9. METOPROLOL TARTRATE [Concomitant]
     Dosage: 50 MG, UNK
  10. PLAVIX [Concomitant]
     Dosage: 75 MG, UNK
  11. ENBREL [Suspect]
     Indication: PRODUCT USED FOR UNKNOWN INDICATION
     Dosage: 50 MG, 2 TIMES/WK
  12. NIASPAN [Concomitant]
  13. POTASSIUM CHLORIDE [Concomitant]
     Dosage: 20 MEQ, UNK

REACTIONS (2)
  - PYREXIA [None]
  - PAIN [None]
